FAERS Safety Report 12495200 (Version 1)
Quarter: 2016Q2

REPORT INFORMATION
  Report Type: Spontaneous
  Country: NO (occurrence: NO)
  Receive Date: 20160624
  Receipt Date: 20160624
  Transmission Date: 20160815
  Serious: Yes (Other)
  Sender: FDA-Public Use
  Company Number: PHHY2016NO085211

PATIENT
  Age: 79 Year
  Sex: Male

DRUGS (3)
  1. PREDNISOLONE. [Concomitant]
     Active Substance: PREDNISOLONE
     Indication: PRODUCT USED FOR UNKNOWN INDICATION
     Dosage: 1 TABLET (5 MG). USED 2 TABLETS PER DAY EARLIER
     Route: 065
     Dates: start: 201203
  2. ZOMETA [Suspect]
     Active Substance: ZOLEDRONIC ACID
     Indication: PROSTATE CANCER METASTATIC
     Dosage: UNK
     Route: 041
     Dates: start: 200808, end: 201103
  3. CORSODYL [Concomitant]
     Active Substance: CHLORHEXIDINE GLUCONATE
     Indication: PRODUCT USED FOR UNKNOWN INDICATION
     Dosage: UNK (IRRIGATION ONCE DAILY)
     Route: 004

REACTIONS (2)
  - Osteonecrosis of jaw [Unknown]
  - Osteitis [Unknown]

NARRATIVE: CASE EVENT DATE: 201103
